FAERS Safety Report 7987121-1 (Version None)
Quarter: 2011Q4

REPORT INFORMATION
  Report Type: 
  Country: None (occurrence: None)
  Receive Date: 20111216
  Receipt Date: 20110318
  Transmission Date: 20120403
  Serious: No
  Sender: FDA-Public Use
  Company Number: US-BRISTOL-MYERS SQUIBB COMPANY-15618754

PATIENT

DRUGS (2)
  1. CONCERTA [Suspect]
  2. ABILIFY [Suspect]
     Route: 048

REACTIONS (2)
  - DRY MOUTH [None]
  - TARDIVE DYSKINESIA [None]
